FAERS Safety Report 25915305 (Version 1)
Quarter: 2025Q4

REPORT INFORMATION
  Report Type: Spontaneous
  Country: US (occurrence: US)
  Receive Date: 20251013
  Receipt Date: 20251013
  Transmission Date: 20260118
  Serious: No
  Sender: PADAGIS
  Company Number: US-PADAGIS-2025PAD01264

PATIENT

DRUGS (1)
  1. ESTRADIOL VAGINAL [Suspect]
     Active Substance: ESTRADIOL
     Indication: Atrophic vulvovaginitis
     Dosage: INSTEAD OF TAKING 1 G THRICE A WEEK OF THE PRODUCT THE CONSUMER HAS TAKEN 28 GRAMS (7 TIMES X 4 GRAM
     Route: 065
     Dates: start: 20250912

REACTIONS (1)
  - Increased dose administered [Unknown]
